FAERS Safety Report 8924490 (Version 2)
Quarter: 2013Q2

REPORT INFORMATION
  Report Type: Spontaneous
  Country: US (occurrence: US)
  Receive Date: 20121127
  Receipt Date: 20130419
  Transmission Date: 20140414
  Serious: Yes (Other)
  Sender: FDA-Public Use
  Company Number: US-009507513-1211USA007681

PATIENT
  Age: 58 Year
  Sex: Male
  Weight: 81.18 kg

DRUGS (4)
  1. VICTRELIS [Suspect]
     Indication: HEPATITIS C
     Dosage: 800 MG, Q8H
     Route: 048
     Dates: start: 20120501, end: 20120616
  2. REBETOL [Suspect]
     Indication: HEPATITIS C
     Dosage: 600 MG, BID
     Route: 048
     Dates: start: 20120403, end: 20120616
  3. PEGASYS [Suspect]
     Indication: HEPATITIS C
     Dosage: 180 MICROGRAM DAILY
     Dates: start: 20120403, end: 20120616
  4. TYLENOL [Concomitant]
     Dosage: 650 MG, Q8H,PRN
     Route: 048
     Dates: start: 20120403, end: 20121020

REACTIONS (3)
  - Sepsis [Recovered/Resolved]
  - Anaemia [Recovered/Resolved]
  - Neutropenia [Recovered/Resolved]
